FAERS Safety Report 6787402-3 (Version None)
Quarter: 2010Q2

REPORT INFORMATION
  Report Type: 
  Country: None (occurrence: None)
  Receive Date: 20100623
  Receipt Date: 20070510
  Transmission Date: 20101027
  Serious: No
  Sender: FDA-Public Use
  Company Number: US-PFIZER INC-2007037848

PATIENT
  Sex: Male
  Weight: 105 kg

DRUGS (8)
  1. SUTENT [Suspect]
     Indication: RENAL CANCER
     Dates: start: 20070401
  2. ZOLOFT [Concomitant]
  3. GEMFIBROZIL [Concomitant]
  4. AMLODIPINE [Concomitant]
  5. VITAMINS [Concomitant]
  6. ACETYLSALICYLIC ACID [Concomitant]
  7. OTHER ANTIDIARRHOEALS [Concomitant]
  8. BENAZEPRIL HYDROCHLORIDE [Concomitant]

REACTIONS (3)
  - BACK PAIN [None]
  - DIARRHOEA [None]
  - PAIN [None]
